FAERS Safety Report 6559104-X (Version None)
Quarter: 2010Q1

REPORT INFORMATION
  Report Type: 
  Country: None (occurrence: None)
  Receive Date: 20100129
  Receipt Date: 20080908
  Transmission Date: 20100710
  Serious: Yes (Other)
  Sender: FDA-Public Use
  Company Number: FR-SANOFI-AVENTIS-F01200801388

PATIENT
  Age: 59 Year
  Sex: Male

DRUGS (11)
  1. OXALIPLATIN [Suspect]
     Indication: COLON CANCER
     Dosage: UNIT DOSE: 75 MG/M2
     Route: 041
     Dates: start: 20061121, end: 20070424
  2. CETUXIMAB [Suspect]
     Indication: COLON CANCER
     Dosage: UNIT DOSE: 250 MG/M2
     Route: 041
     Dates: start: 20061121, end: 20070424
  3. FLUOROURACIL [Suspect]
     Indication: COLON CANCER
     Dosage: UNIT DOSE: 1000 MG/M2
     Route: 041
     Dates: start: 20061121, end: 20070424
  4. FOLINIC ACID [Suspect]
     Indication: COLON CANCER
     Dosage: UNIT DOSE: 20 MG/M2
     Route: 041
     Dates: start: 20061121, end: 20070424
  5. PANTOPRAZOLE [Concomitant]
     Route: 048
  6. ONDANSETRON [Concomitant]
     Route: 048
  7. ALBUTEROL [Concomitant]
  8. TETRACYCLINE [Concomitant]
  9. ANTIHISTAMINES FOR SYSTEMIC USE [Concomitant]
     Route: 042
  10. METHYLPREDNISOLONE [Concomitant]
     Route: 042
  11. GRANISETRON [Concomitant]
     Route: 042

REACTIONS (3)
  - FOCAL NODULAR HYPERPLASIA [None]
  - PORTAL VEIN THROMBOSIS [None]
  - SPLENOMEGALY [None]
